FAERS Safety Report 21530059 (Version 2)
Quarter: 2022Q4

REPORT INFORMATION
  Report Type: Spontaneous
  Country: ES (occurrence: ES)
  Receive Date: 20221031
  Receipt Date: 20221114
  Transmission Date: 20230113
  Serious: Yes (Hospitalization, Other)
  Sender: FDA-Public Use
  Company Number: ES-KRKA-ES2022K09070LIT

PATIENT
  Age: 81 Year
  Sex: Female

DRUGS (14)
  1. ACETAMINOPHEN [Suspect]
     Active Substance: ACETAMINOPHEN
     Dosage: UNK, AS NEEDED
     Route: 065
  2. ENALAPRIL [Suspect]
     Active Substance: ENALAPRIL
     Dosage: 1/2-0-1/ 2
     Route: 065
     Dates: start: 202201, end: 202204
  3. FUROSEMIDE [Suspect]
     Active Substance: FUROSEMIDE
     Dosage: 1-0-1/2
     Route: 065
     Dates: start: 202201, end: 202204
  4. BRINZOLAMIDE [Suspect]
     Active Substance: BRINZOLAMIDE
     Dosage: 1-0-1
     Route: 065
     Dates: start: 202201, end: 202204
  5. CHOLECALCIFEROL [Suspect]
     Active Substance: CHOLECALCIFEROL
     Dosage: 25000 IU, PER MONTH
     Route: 065
  6. ATORVASTATIN [Suspect]
     Active Substance: ATORVASTATIN
     Indication: Dyslipidaemia
     Dosage: 40 MG, 1X PER DAY, 0-0-1
     Route: 065
  7. APIXABAN [Suspect]
     Active Substance: APIXABAN
     Dosage: 1-0-1
     Route: 065
     Dates: start: 202201, end: 202203
  8. IBANDRONIC ACID [Suspect]
     Active Substance: IBANDRONIC ACID
     Dosage: 1-0-0
     Route: 065
     Dates: start: 202201, end: 202204
  9. METILDIGOXIN [Suspect]
     Active Substance: METILDIGOXIN
     Dosage: 1-0-0
     Route: 065
     Dates: start: 202201, end: 202202
  10. EPLERENONE [Suspect]
     Active Substance: EPLERENONE
     Dosage: 1/2-0-0
     Route: 065
     Dates: start: 202201, end: 202204
  11. MOMETASONE [Suspect]
     Active Substance: MOMETASONE
     Dosage: UNK
     Route: 065
     Dates: start: 202201, end: 202204
  12. OMEPRAZOLE [Suspect]
     Active Substance: OMEPRAZOLE
     Dosage: 1-0-0
     Route: 065
  13. AMLODIPINE [Suspect]
     Active Substance: AMLODIPINE BESYLATE
     Indication: Hypertension
     Dosage: 5 MG, 1X PER DAY, 0-0-1
     Route: 065
  14. BETAMETHASONE\CALCIPOTRIENE [Suspect]
     Active Substance: BETAMETHASONE\CALCIPOTRIENE
     Dosage: 50 MCG/0.5 MG/G GEL AND FOAM
     Route: 065
     Dates: start: 202201, end: 202204

REACTIONS (7)
  - Bradycardia [Unknown]
  - Dizziness [Unknown]
  - Wound haemorrhage [Unknown]
  - Off label use [Unknown]
  - Dyspnoea [Unknown]
  - Therapeutic product effect decreased [Unknown]
  - Medication error [Unknown]

NARRATIVE: CASE EVENT DATE: 20220301
